FAERS Safety Report 15864499 (Version 1)
Quarter: 2019Q1

REPORT INFORMATION
  Report Type: Spontaneous
  Country: DE (occurrence: DE)
  Receive Date: 20190124
  Receipt Date: 20190124
  Transmission Date: 20190417
  Serious: Yes (Hospitalization, Other)
  Sender: FDA-Public Use
  Company Number: DE-ALEXION-A201901139

PATIENT
  Age: 38 Year
  Sex: Female

DRUGS (5)
  1. SOLIRIS [Suspect]
     Active Substance: ECULIZUMAB
     Dosage: 1200 MG, Q2W
     Route: 042
     Dates: start: 201502, end: 201508
  2. SOLIRIS [Suspect]
     Active Substance: ECULIZUMAB
     Indication: PAROXYSMAL NOCTURNAL HAEMOGLOBINURIA
     Dosage: 600 MG, QW
     Route: 042
     Dates: start: 201102
  3. CYCLOSPORINE. [Concomitant]
     Active Substance: CYCLOSPORINE
     Indication: PRODUCT USED FOR UNKNOWN INDICATION
     Route: 065
  4. SOLIRIS [Suspect]
     Active Substance: ECULIZUMAB
     Dosage: 900 MG, UNK
     Route: 042
     Dates: start: 201508
  5. SOLIRIS [Suspect]
     Active Substance: ECULIZUMAB
     Indication: APLASTIC ANAEMIA
     Dosage: 900 MG, Q2W
     Route: 042
     Dates: start: 201205

REACTIONS (7)
  - Sepsis [Unknown]
  - Vomiting [Recovered/Resolved]
  - Liver abscess [Unknown]
  - Urosepsis [Unknown]
  - Diarrhoea haemorrhagic [Recovered/Resolved]
  - Pneumonia klebsiella [Unknown]
  - Pneumonia [Unknown]

NARRATIVE: CASE EVENT DATE: 201106
